FAERS Safety Report 21930687 (Version 1)
Quarter: 2023Q1

REPORT INFORMATION
  Report Type: Spontaneous
  Country: CA (occurrence: CA)
  Receive Date: 20230131
  Receipt Date: 20230131
  Transmission Date: 20230417
  Serious: Yes (Other)
  Sender: FDA-Public Use
  Company Number: CA-SA-2023SA029884

PATIENT
  Age: 29 Year
  Sex: Female

DRUGS (1)
  1. ANTI-THYMOCYTE GLOBULIN (RABBIT) NOS [Suspect]
     Active Substance: LAPINE T-LYMPHOCYTE IMMUNE GLOBULIN
     Indication: Aplastic anaemia

REACTIONS (4)
  - Posterior reversible encephalopathy syndrome [Unknown]
  - Seizure [Unknown]
  - Serum sickness [Unknown]
  - Exposure during pregnancy [Unknown]
